FAERS Safety Report 5192117-1 (Version None)
Quarter: 2006Q4

REPORT INFORMATION
  Report Type: 
  Country: None (occurrence: None)
  Receive Date: 20061220
  Receipt Date: 20061213
  Transmission Date: 20070319
  Serious: Yes (Life-Threatening)
  Sender: FDA-Public Use
  Company Number: 232846

PATIENT
  Age: 87 Year
  Sex: Male

DRUGS (6)
  1. GRTPA (ALTEPLASE) PWDR + SOLVENT, INFUSION SOLN [Suspect]
     Indication: CEREBRAL ARTERY EMBOLISM
     Dosage: SEE IMAGE
     Dates: start: 20061110, end: 20061110
  2. GRTPA (ALTEPLASE) PWDR + SOLVENT, INFUSION SOLN [Suspect]
     Indication: CEREBRAL ARTERY EMBOLISM
     Dosage: SEE IMAGE
     Dates: start: 20061110, end: 20061110
  3. HEPARIN [Suspect]
     Indication: ATRIAL FIBRILLATION
     Dosage: 10 KIU
     Dates: start: 20061111, end: 20061114
  4. RADICUT (EDARAVONE) [Concomitant]
  5. FAMOTIDINE [Concomitant]
  6. GLYCERIN [Concomitant]

REACTIONS (5)
  - DISSEMINATED INTRAVASCULAR COAGULATION [None]
  - MULTI-ORGAN FAILURE [None]
  - PLATELET COUNT DECREASED [None]
  - RENAL IMPAIRMENT [None]
  - RESPIRATORY DISORDER [None]
